FAERS Safety Report 9444404 (Version 1)
Quarter: 2013Q3

REPORT INFORMATION
  Report Type: Report from Study
  Country: ES (occurrence: ES)
  Receive Date: 20130807
  Receipt Date: 20130807
  Transmission Date: 20140515
  Serious: Yes (Hospitalization)
  Sender: FDA-Public Use
  Company Number: ES-ROCHE-1250541

PATIENT
  Age: 74 Year
  Sex: Male
  Weight: 63.5 kg

DRUGS (3)
  1. BEVACIZUMAB [Suspect]
     Indication: ADENOCARCINOMA OF COLON
     Dosage: LAST DOSE PRIOR TO SAE WAS ON 25/JUN/2013, START DATE OF LAST CYCLE WAS 25/JUN/2013.
     Route: 042
     Dates: start: 20130516
  2. CAPECITABINE [Suspect]
     Indication: ADENOCARCINOMA OF COLON
     Dosage: LAST DOSE PRIOR TO SAE WAS ON 07/JUL/2013.  PATIENT RECEIVED 3 CYCLES AND START DATE OF LAST CYCLE W
     Route: 048
     Dates: start: 20130516
  3. OXALIPLATIN [Suspect]
     Indication: ADENOCARCINOMA OF COLON
     Dosage: LAST DOSE PRIOR TO SAE WAS ON 25/JUN/2013, PATIENT RECEIVED 3 CYCLES OF AND START DATE OF LAST CYCLE
     Route: 042
     Dates: start: 20130516

REACTIONS (1)
  - Enteritis [Not Recovered/Not Resolved]
